FAERS Safety Report 23650311 (Version 1)
Quarter: 2024Q1

REPORT INFORMATION
  Report Type: Spontaneous
  Country: US (occurrence: None)
  Receive Date: 20240320
  Receipt Date: 20240320
  Transmission Date: 20240410
  Serious: No
  Sender: FDA-Public Use
  Company Number: US-ROCHE-3475392

PATIENT
  Age: 80 Year
  Sex: Male
  Weight: 56.75 kg

DRUGS (3)
  1. VABYSMO [Suspect]
     Active Substance: FARICIMAB\FARICIMAB-SVOA
     Indication: Neovascular age-related macular degeneration
     Dosage: YES
     Route: 031
  2. AVASTIN [Suspect]
     Active Substance: BEVACIZUMAB
     Indication: Neovascular age-related macular degeneration
     Dosage: NO
     Route: 031
  3. SALINE [Concomitant]
     Active Substance: SODIUM CHLORIDE
     Route: 047

REACTIONS (3)
  - Eye pain [Recovered/Resolved]
  - Vitreous floaters [Recovering/Resolving]
  - Off label use [Unknown]
